FAERS Safety Report 8875377 (Version 2)
Quarter: 2012Q4

REPORT INFORMATION
  Report Type: 
  Country: US (occurrence: US)
  Receive Date: 20121023
  Receipt Date: 20121203
  Transmission Date: 20130627
  Serious: Yes (Death)
  Sender: FDA-Public Use
  Company Number: US-ROCHE-1133493

PATIENT
  Sex: Male

DRUGS (1)
  1. RAPTIVA [Suspect]
     Indication: PSORIATIC ARTHROPATHY
     Route: 058
     Dates: start: 20040616, end: 200809

REACTIONS (4)
  - Progressive multifocal leukoencephalopathy [Fatal]
  - Pruritus [Unknown]
  - Haemorrhage [Unknown]
  - Skin fissures [Unknown]
